FAERS Safety Report 18466796 (Version 1)
Quarter: 2020Q4

REPORT INFORMATION
  Report Type: Spontaneous
  Country: IT (occurrence: IT)
  Receive Date: 20201105
  Receipt Date: 20201105
  Transmission Date: 20210114
  Serious: Yes (Other)
  Sender: FDA-Public Use
  Company Number: IT-AUROBINDO-AUR-APL-2020-055759

PATIENT
  Age: 66 Year
  Sex: Male

DRUGS (1)
  1. IMATINIB. [Suspect]
     Active Substance: IMATINIB MESYLATE
     Indication: GIANT CELL TUMOUR OF TENDON SHEATH
     Dosage: 400 MILLIGRAM, ONCE A DAY
     Route: 048
     Dates: start: 20190709

REACTIONS (2)
  - Eyelid oedema [Unknown]
  - Off label use [Unknown]

NARRATIVE: CASE EVENT DATE: 20200603
